FAERS Safety Report 7217541-4 (Version None)
Quarter: 2011Q1

REPORT INFORMATION
  Report Type: 
  Country: None (occurrence: None)
  Receive Date: 20110110
  Receipt Date: 20110103
  Transmission Date: 20110831
  Serious: Yes (Hospitalization)
  Sender: FDA-Public Use
  Company Number: FR-PFIZER INC-2010181567

PATIENT
  Age: 98 Year
  Sex: Female

DRUGS (10)
  1. ENALAPRIL MALEATE/LERCANIDIPINE HYDROCHLORIDE (LERCAPRESS) [Suspect]
     Dosage: UNK
     Route: 048
     Dates: end: 20100903
  2. TEMESTA [Concomitant]
     Dosage: 2.5 MG, 1X/DAY
     Route: 048
  3. CLARITIN [Concomitant]
     Dosage: 10 MG, 1X/DAY
     Route: 048
  4. FUROSEMIDE [Suspect]
     Dosage: 20 MG, 1X/DAY
     Route: 048
     Dates: end: 20100903
  5. MEDIATENSYL [Concomitant]
     Dosage: 60 MG, 3X/DAY
     Route: 048
  6. ALLOPURINOL [Concomitant]
     Dosage: 100 MG, 1X/DAY
     Route: 048
  7. BROMAZEPAM [Suspect]
     Dosage: 6 MG, 1X/DAY
     Route: 048
     Dates: end: 20100903
  8. ATARAX [Suspect]
     Dosage: 25 MG, 2X/DAY
     Route: 048
     Dates: end: 20100903
  9. ALDACTONE [Suspect]
     Dosage: 1 DF, UNK
     Route: 048
     Dates: end: 20100903
  10. ASPIRIN [Suspect]
     Dosage: 75 MG, 1X/DAY
     Route: 048

REACTIONS (1)
  - RENAL FAILURE ACUTE [None]
